FAERS Safety Report 6984405-0 (Version None)
Quarter: 2010Q3

REPORT INFORMATION
  Report Type: 
  Country: None (occurrence: None)
  Receive Date: 20100915
  Receipt Date: 20100901
  Transmission Date: 20110219
  Serious: Yes (Death, Hospitalization)
  Sender: FDA-Public Use
  Company Number: KR-BAYER-201038410GPV

PATIENT
  Age: 46 Year
  Sex: Female

DRUGS (8)
  1. DACARBAZINE [Suspect]
     Indication: METASTATIC MALIGNANT MELANOMA
     Dosage: DAYS 1-5 OF CYCLE ONE
  2. DACARBAZINE [Suspect]
     Dosage: DAYS 1-3 OF CYCLE ONE
  3. VINBLASTINE [Suspect]
     Indication: METASTATIC MALIGNANT MELANOMA
     Dosage: DAYS 1-3 OF CYCLE ONE
  4. CISPLATIN [Suspect]
     Indication: METASTATIC MALIGNANT MELANOMA
     Dosage: DAYS 1-5 OF CYCLE ONE
  5. CYCLOPHOSPHAMIDE [Suspect]
     Indication: METASTATIC MALIGNANT MELANOMA
     Dosage: D1 C1
  6. VINCRISTINE [Suspect]
     Indication: METASTATIC MALIGNANT MELANOMA
     Dosage: D1 AND 5 C1
  7. DOXORUBICIN HCL [Suspect]
     Indication: METASTATIC MALIGNANT MELANOMA
     Dosage: D1 C1
  8. UNKNOWN [Concomitant]
     Indication: SEPSIS

REACTIONS (3)
  - ASTHENIA [None]
  - NEUTROPENIA [None]
  - SEPTIC SHOCK [None]
